FAERS Safety Report 7681588-4 (Version None)
Quarter: 2011Q3

REPORT INFORMATION
  Report Type: 
  Country: None (occurrence: None)
  Receive Date: 20110812
  Receipt Date: 20110804
  Transmission Date: 20111222
  Serious: Yes (Other)
  Sender: FDA-Public Use
  Company Number: PHHY2011CA61594

PATIENT
  Sex: Female

DRUGS (2)
  1. ZOLOFT [Concomitant]
     Dosage: 100 MG, QD
  2. GILENYA [Suspect]
     Indication: RELAPSING-REMITTING MULTIPLE SCLEROSIS
     Dosage: 0.5 MG, DAILY
     Route: 048
     Dates: start: 20110706

REACTIONS (11)
  - EYE DISORDER [None]
  - MACULAR DEGENERATION [None]
  - ASTHENOPIA [None]
  - PARAESTHESIA [None]
  - HYPOAESTHESIA [None]
  - LIMB DISCOMFORT [None]
  - HEAD DISCOMFORT [None]
  - FATIGUE [None]
  - MULTIPLE SCLEROSIS RELAPSE [None]
  - EYE PAIN [None]
  - VISUAL IMPAIRMENT [None]
